FAERS Safety Report 5923325-7 (Version None)
Quarter: 2008Q4

REPORT INFORMATION
  Report Type: 
  Country: None (occurrence: None)
  Receive Date: 20081015
  Receipt Date: 20080930
  Transmission Date: 20090506
  Serious: Yes (Other)
  Sender: FDA-Public Use
  Company Number: 230158K08USA

PATIENT
  Age: 49 Year
  Sex: Female

DRUGS (4)
  1. REBIF [Suspect]
     Indication: MULTIPLE SCLEROSIS
     Dosage: 44 MCG, 3 IN 1 WEEKS, SUBCUTANEOUS
     Route: 058
     Dates: start: 20080415
  2. BACLOFEN [Concomitant]
  3. AMANTADINE HCL [Concomitant]
  4. NEURONTIN [Concomitant]

REACTIONS (3)
  - BONE SARCOMA [None]
  - JOINT SWELLING [None]
  - MASS [None]
